FAERS Safety Report 19144717 (Version 1)
Quarter: 2021Q2

REPORT INFORMATION
  Report Type: Spontaneous
  Country: US (occurrence: US)
  Receive Date: 20210415
  Receipt Date: 20210415
  Transmission Date: 20210717
  Serious: No
  Sender: FDA-Public Use
  Company Number: None

PATIENT
  Age: 65 Year
  Sex: Male
  Weight: 86.4 kg

DRUGS (6)
  1. ONE A DAY MEN^S VITACRAVES [Concomitant]
  2. NINLARO [Suspect]
     Active Substance: IXAZOMIB CITRATE
     Indication: PLASMA CELL MYELOMA
     Dosage: ?          OTHER FREQUENCY:WEEKLY FOR 3/4WKS;?
     Route: 048
     Dates: start: 20200723
  3. ACYCLOVIR. [Concomitant]
     Active Substance: ACYCLOVIR
  4. CALCIUM [Concomitant]
     Active Substance: CALCIUM
  5. DEXAMETHASONE. [Suspect]
     Active Substance: DEXAMETHASONE
     Indication: PLASMA CELL MYELOMA
     Dosage: ?          OTHER FREQUENCY:WEEKLY 3/4 WEEKS;?
     Route: 048
     Dates: start: 20200723
  6. VITAMIN D3 [Concomitant]
     Active Substance: CHOLECALCIFEROL

REACTIONS (1)
  - Disease recurrence [None]

NARRATIVE: CASE EVENT DATE: 20210415
